FAERS Safety Report 15959758 (Version 1)
Quarter: 2019Q1

REPORT INFORMATION
  Report Type: Spontaneous
  Country: CA (occurrence: CA)
  Receive Date: 20190214
  Receipt Date: 20190214
  Transmission Date: 20190417
  Serious: Yes (Other)
  Sender: FDA-Public Use
  Company Number: CA-TEVA-2019-CA-1011934

PATIENT
  Age: 66 Year
  Sex: Female

DRUGS (4)
  1. METHOTREXATE. [Suspect]
     Active Substance: METHOTREXATE
     Indication: RHEUMATOID ARTHRITIS
     Route: 065
  2. METHOTREXATE. [Suspect]
     Active Substance: METHOTREXATE
     Indication: RHEUMATOID ARTHRITIS
     Route: 048
  3. XELJANZ [Concomitant]
     Active Substance: TOFACITINIB CITRATE
     Indication: RHEUMATOID ARTHRITIS
     Dosage: 10 MILLIGRAM DAILY;
     Route: 048
  4. ACETAMINOPHEN AND CODEINE [Concomitant]
     Active Substance: ACETAMINOPHEN\CODEINE PHOSPHATE
     Indication: PAIN

REACTIONS (13)
  - Diabetes mellitus [Not Recovered/Not Resolved]
  - Loss of personal independence in daily activities [Not Recovered/Not Resolved]
  - Osteoarthritis [Not Recovered/Not Resolved]
  - Blood pressure abnormal [Not Recovered/Not Resolved]
  - Decreased appetite [Not Recovered/Not Resolved]
  - Drug effect incomplete [Not Recovered/Not Resolved]
  - Fall [Not Recovered/Not Resolved]
  - Hip fracture [Not Recovered/Not Resolved]
  - Weight decreased [Not Recovered/Not Resolved]
  - Cardiac disorder [Not Recovered/Not Resolved]
  - Malaise [Not Recovered/Not Resolved]
  - Nausea [Not Recovered/Not Resolved]
  - Gait disturbance [Not Recovered/Not Resolved]
